FAERS Safety Report 13523510 (Version 7)
Quarter: 2017Q3

REPORT INFORMATION
  Report Type: Spontaneous
  Country: US (occurrence: US)
  Receive Date: 20170508
  Receipt Date: 20170824
  Transmission Date: 20171127
  Serious: Yes (Other)
  Sender: FDA-Public Use
  Company Number: US-PFIZER INC-2017195157

PATIENT
  Age: 56 Year
  Sex: Female
  Weight: 49.55 kg

DRUGS (18)
  1. TRIAMCINOLONE ACETONIDE. [Concomitant]
     Active Substance: TRIAMCINOLONE ACETONIDE
     Dosage: UNK, 3X/DAY (APPLY TO AFFECTED AREA)
  2. LORAZEPAM. [Concomitant]
     Active Substance: LORAZEPAM
     Dosage: UNK (TAKE ONE-HALF TO ONE PILL)
     Route: 048
  3. ACIDOPHILUS PROBIOTIC [Concomitant]
     Dosage: UNK
  4. FOLIC ACID. [Concomitant]
     Active Substance: FOLIC ACID
     Dosage: 1 MG, DAILY
     Route: 048
  5. XELJANZ XR [Suspect]
     Active Substance: TOFACITINIB CITRATE
     Indication: RHEUMATOID ARTHRITIS
     Dosage: 11 MG, DAILY (ONE TAB)
     Dates: start: 201703
  6. KETOCONAZOLE. [Concomitant]
     Active Substance: KETOCONAZOLE
     Dosage: UNK (3X/WEEK, LEAVE IN HAIR 5-10 MIN BEFORE WASHING OFF, GIVE LARGEST BOTTLE)
  7. TRAMADOL HCL [Concomitant]
     Active Substance: TRAMADOL HYDROCHLORIDE
     Dosage: 50 MG, 3X/DAY (EVERY 8 HOURS)
     Route: 048
  8. VITAMIN D3 [Concomitant]
     Active Substance: CHOLECALCIFEROL
     Dosage: 2000 IU, UNK
  9. FOSAMAX [Concomitant]
     Active Substance: ALENDRONATE SODIUM
     Dosage: 70 MG, WEEKLY (TAKE ONE TABLET)
  10. XELJANZ XR [Suspect]
     Active Substance: TOFACITINIB CITRATE
     Dosage: 11 MG, DAILY, ONE TAB
  11. FOLIC ACID. [Concomitant]
     Active Substance: FOLIC ACID
     Dosage: 5 MG, 1X/DAY
  12. VOLTAREN [Concomitant]
     Active Substance: DICLOFENAC SODIUM
     Dosage: UNK (APPLY ONE GRAM TO THE FINGERS EVERY 4 HOURS UP TO 5 TIMES PER DAY)
  13. ESTRACE [Concomitant]
     Active Substance: ESTRADIOL
     Dosage: UNK UNK, DAILY (TAKE 1/2 TO ONE TABLET DAILY)
  14. NYSTATIN. [Concomitant]
     Active Substance: NYSTATIN
     Dosage: 100000 IU/ML, (ONE AND 1 /2 TEASPOONS SWISH AND SWALLOW 3-4 TIMES PER DAY FOR 21 DAYS)
  15. VITAMIN D [Concomitant]
     Active Substance: CHOLECALCIFEROL
     Dosage: UNK
  16. SALAGEN [Concomitant]
     Active Substance: PILOCARPINE HYDROCHLORIDE
     Dosage: 5 MG, AS NEEDED (TAKE ONE TABLET BY MOUTH UP TO 3 TIMES DAILY)
     Route: 048
  17. MILK THISTLE [Concomitant]
     Active Substance: MILK THISTLE
     Dosage: UNK UNK, 2X/DAY
  18. OMEPRAZOLE. [Concomitant]
     Active Substance: OMEPRAZOLE
     Dosage: 20 MG, DAILY (TAKE ONE TABLET)
     Route: 048

REACTIONS (13)
  - Musculoskeletal stiffness [Unknown]
  - Dry mouth [Unknown]
  - Dyspepsia [Recovered/Resolved]
  - Sensitivity to weather change [Unknown]
  - Condition aggravated [Unknown]
  - Nodule [Unknown]
  - Abdominal discomfort [Unknown]
  - Fatigue [Unknown]
  - Weight increased [Unknown]
  - Anxiety [Recovering/Resolving]
  - Synovitis [Recovering/Resolving]
  - Anaemia [Recovered/Resolved]
  - Dupuytren^s contracture [Unknown]
